FAERS Safety Report 4451614-4 (Version None)
Quarter: 2004Q3

REPORT INFORMATION
  Report Type: 
  Country: None (occurrence: None)
  Receive Date: 20040915
  Receipt Date: 20040901
  Transmission Date: 20050211
  Serious: Yes (Death, Hospitalization, Other)
  Sender: FDA-Public Use
  Company Number: 2004056366

PATIENT
  Age: 73 Year
  Sex: Male
  Weight: 81 kg

DRUGS (5)
  1. ATORVASTATIN CALCIUM [Suspect]
     Indication: ILL-DEFINED DISORDER
     Dosage: 20 MG (20 MG, 1 IN 1 D), ORAL
     Route: 048
     Dates: start: 20040309, end: 20040324
  2. GLYBURIDE [Suspect]
     Indication: ILL-DEFINED DISORDER
     Dates: start: 20040101
  3. TORSEMIDE [Concomitant]
  4. RAMIPRIL [Concomitant]
  5. ASPIRIN [Concomitant]

REACTIONS (7)
  - ABDOMINAL PAIN [None]
  - DYSPEPSIA [None]
  - FOOD AVERSION [None]
  - GENERAL PHYSICAL HEALTH DETERIORATION [None]
  - HEPATIC FAILURE [None]
  - HEPATOTOXICITY [None]
  - NAUSEA [None]
